FAERS Safety Report 6550885-8 (Version None)
Quarter: 2010Q1

REPORT INFORMATION
  Report Type: 
  Country: None (occurrence: None)
  Receive Date: 20100125
  Receipt Date: 20091013
  Transmission Date: 20100710
  Serious: No
  Sender: FDA-Public Use
  Company Number: US-BRISTOL-MYERS SQUIBB COMPANY-14817712

PATIENT
  Age: 55 Year
  Sex: Male

DRUGS (4)
  1. BARACLUDE [Suspect]
     Indication: HEPATITIS B
     Route: 048
     Dates: start: 20090811
  2. FUNGIZONE [Suspect]
     Indication: FUNGAL INFECTION
     Route: 041
     Dates: start: 20090831, end: 20090902
  3. SULFAMETHOXAZOLE AND TRIMETHOPRIM [Suspect]
     Route: 048
     Dates: start: 20090811, end: 20090910
  4. INTERFERON ALFA-2B [Suspect]
     Dosage: 1 DF - 6000000X1 UNITS
     Route: 030
     Dates: start: 20090811, end: 20090904

REACTIONS (1)
  - DRUG ERUPTION [None]
